FAERS Safety Report 5920095-3 (Version None)
Quarter: 2008Q4

REPORT INFORMATION
  Report Type: 
  Country: None (occurrence: None)
  Receive Date: 20081016
  Receipt Date: 20081010
  Transmission Date: 20090506
  Serious: Yes (Life-Threatening)
  Sender: FDA-Public Use
  Company Number: DE-RANBAXY-2008RR-18607

PATIENT
  Age: 27 Year
  Sex: Male
  Weight: 67 kg

DRUGS (2)
  1. IBUPROFEN TABLETS [Suspect]
     Indication: MYALGIA
     Dosage: 1 DF, UNK
     Dates: start: 20080805, end: 20080807
  2. TETANUS IMPFSTOFF [Suspect]
     Dosage: UNK
     Dates: start: 20080701

REACTIONS (6)
  - HAEMOLYSIS [None]
  - MYALGIA [None]
  - PULMONARY HAEMORRHAGE [None]
  - PYREXIA [None]
  - RENAL FAILURE ACUTE [None]
  - THROMBOCYTOPENIA [None]
